FAERS Safety Report 12255411 (Version 1)
Quarter: 2016Q2

REPORT INFORMATION
  Report Type: Spontaneous
  Country: CH (occurrence: CH)
  Receive Date: 20160412
  Receipt Date: 20160412
  Transmission Date: 20160815
  Serious: Yes (Hospitalization)
  Sender: FDA-Public Use
  Company Number: CH-HORIZON-BUP-0045-2016

PATIENT
  Sex: Male

DRUGS (6)
  1. E-AM ANAMIX [Concomitant]
  2. SODIUM PHENYLBUTYRATE. [Suspect]
     Active Substance: SODIUM PHENYLBUTYRATE
     Indication: ORNITHINE TRANSCARBAMOYLASE DEFICIENCY
     Dosage: 143-338 MG/KG BODYWEIGHT
     Dates: start: 200906, end: 201312
  3. UCD 2 [Concomitant]
  4. L-CITRULLINE [Concomitant]
     Active Substance: CITRULLINE
     Dosage: 2-3 MMOL/KG BODYWEIGHT
  5. L-ARGININE [Concomitant]
     Active Substance: ARGININE
     Dosage: 1.4-2.2 MMOL/KG BODYWEIGHT
  6. SODIUM BENZOATE [Concomitant]
     Active Substance: SODIUM BENZOATE
     Dosage: 166-311 MG/KG BODYWEIGHT

REACTIONS (1)
  - Hyperammonaemic crisis [Recovering/Resolving]
